FAERS Safety Report 5162819-1 (Version None)
Quarter: 2006Q4

REPORT INFORMATION
  Report Type: 
  Country: None (occurrence: None)
  Receive Date: 20061201
  Receipt Date: 20061128
  Transmission Date: 20070319
  Serious: Yes (Other)
  Sender: FDA-Public Use
  Company Number: US-GLAXOSMITHKLINE-A0628969A

PATIENT
  Age: 19 Month
  Sex: Male

DRUGS (6)
  1. LAMICTAL [Suspect]
     Indication: BIPOLAR DISORDER
  2. ADDERALL 10 [Concomitant]
  3. EFFEXOR XR [Concomitant]
  4. TOPAMAX [Concomitant]
  5. ZYPREXA [Concomitant]
  6. INSULIN [Concomitant]

REACTIONS (8)
  - ANTISOCIAL BEHAVIOUR [None]
  - AUTISM SPECTRUM DISORDER [None]
  - CAESAREAN SECTION [None]
  - CONGENITAL CENTRAL NERVOUS SYSTEM ANOMALY [None]
  - DRUG EXPOSURE DURING PREGNANCY [None]
  - LIVE BIRTH [None]
  - SPEECH DISORDER [None]
  - SPEECH DISORDER DEVELOPMENTAL [None]
